FAERS Safety Report 4313839-8 (Version None)
Quarter: 2004Q1

REPORT INFORMATION
  Report Type: 
  Country: None (occurrence: None)
  Receive Date: 20040308
  Receipt Date: 20020205
  Transmission Date: 20041129
  Serious: No
  Sender: FDA-Public Use
  Company Number: WAES 0202USA00506M

PATIENT
  Age: 38 Year
  Sex: Female

DRUGS (4)
  1. ALBUTEROL [Concomitant]
     Route: 055
  2. PULMICORT [Concomitant]
     Route: 055
     Dates: start: 20020401
  3. SINGULAIR [Suspect]
     Route: 048
     Dates: start: 20020502
  4. SINGULAIR [Suspect]
     Route: 048
     Dates: end: 20020101

REACTIONS (5)
  - BRONCHITIS [None]
  - COUGH [None]
  - DRUG EXPOSURE DURING PREGNANCY [None]
  - DYSPNOEA [None]
  - PREGNANCY [None]
